FAERS Safety Report 8081275-7 (Version None)
Quarter: 2012Q1

REPORT INFORMATION
  Report Type: 
  Country: None (occurrence: None)
  Receive Date: 20120130
  Receipt Date: 20120123
  Transmission Date: 20120608
  Serious: Yes (Disabling)
  Sender: FDA-Public Use
  Company Number: FI-ABBOTT-12P-055-0896789-00

PATIENT
  Sex: Male

DRUGS (4)
  1. SIMVASTATIN [Interacting]
     Indication: COMBINED HYPERLIPIDAEMIA
     Route: 048
  2. GLUCOSAMINE HYDROCHLORIDE [Concomitant]
     Indication: PRODUCT USED FOR UNKNOWN INDICATION
  3. FENOFIBRATE [Suspect]
     Indication: COMBINED HYPERLIPIDAEMIA
     Route: 048
  4. SALMETEROL XINAFOATE/FLUTICASONE PROPIONATE [Concomitant]
     Indication: CHRONIC OBSTRUCTIVE PULMONARY DISEASE
     Route: 055

REACTIONS (4)
  - PERONEAL NERVE PALSY [None]
  - PARAPARESIS [None]
  - DRUG INTERACTION [None]
  - POLYNEUROPATHY [None]
